FAERS Safety Report 8584813-0 (Version None)
Quarter: 2012Q3

REPORT INFORMATION
  Report Type: 
  Country: None (occurrence: None)
  Receive Date: 20120810
  Receipt Date: 20120731
  Transmission Date: 20120928
  Serious: Yes (Other)
  Sender: FDA-Public Use
  Company Number: US-JNJFOC-20120801819

PATIENT
  Sex: Male
  Weight: 88.45 kg

DRUGS (3)
  1. REMICADE [Suspect]
     Route: 042
     Dates: start: 20120709
  2. NEXIUM [Concomitant]
     Indication: DYSPEPSIA
     Route: 048
  3. REMICADE [Suspect]
     Indication: RHEUMATOID ARTHRITIS
     Route: 042
     Dates: end: 20120101

REACTIONS (9)
  - CONTUSION [None]
  - FLANK PAIN [None]
  - DEPRESSION [None]
  - FALL [None]
  - BLOOD CHOLESTEROL INCREASED [None]
  - PROSTATE CANCER [None]
  - BODY HEIGHT DECREASED [None]
  - DEMENTIA ALZHEIMER'S TYPE [None]
  - BACK PAIN [None]
